FAERS Safety Report 7723946-5 (Version None)
Quarter: 2011Q3

REPORT INFORMATION
  Report Type: 
  Country: None (occurrence: None)
  Receive Date: 20110901
  Receipt Date: 20110822
  Transmission Date: 20111222
  Serious: Yes (Hospitalization, Other)
  Sender: FDA-Public Use
  Company Number: US-ELI_LILLY_AND_COMPANY-US201108007871

PATIENT
  Sex: Female

DRUGS (5)
  1. LEVOXYL [Concomitant]
  2. MYSOLINE [Concomitant]
  3. FORTEO [Suspect]
     Indication: OSTEOPOROSIS
     Dosage: 20 UG, QD
     Dates: start: 20101201
  4. PLAQUENIL [Concomitant]
  5. TENORMIN [Concomitant]

REACTIONS (3)
  - HYPOACUSIS [None]
  - FEMUR FRACTURE [None]
  - MEMORY IMPAIRMENT [None]
